FAERS Safety Report 22358394 (Version 1)
Quarter: 2023Q2

REPORT INFORMATION
  Report Type: Spontaneous
  Country: GH (occurrence: GH)
  Receive Date: 20230524
  Receipt Date: 20230524
  Transmission Date: 20230721
  Serious: Yes (Other)
  Sender: FDA-Public Use
  Company Number: GH-002147023-NVSC2023GH116203

PATIENT
  Sex: Male

DRUGS (1)
  1. INCLISIRAN [Suspect]
     Active Substance: INCLISIRAN
     Indication: Low density lipoprotein increased
     Dosage: 284 MG, (STARTED AT MONTH 3, THEN EVERY 6 MONTHS)
     Route: 058

REACTIONS (2)
  - Aspartate aminotransferase increased [Unknown]
  - Alanine aminotransferase increased [Unknown]
